FAERS Safety Report 14607866 (Version 2)
Quarter: 2018Q2

REPORT INFORMATION
  Report Type: Spontaneous
  Country: US (occurrence: US)
  Receive Date: 20180307
  Receipt Date: 20180422
  Transmission Date: 20180711
  Serious: Yes (Other)
  Sender: FDA-Public Use
  Company Number: US-APOTEX-2018AP007883

PATIENT
  Age: 12 Year
  Sex: Male

DRUGS (12)
  1. CEFTRIAXONE. [Suspect]
     Active Substance: CEFTRIAXONE
     Indication: PNEUMONIA
  2. VANCOMYCIN [Concomitant]
     Active Substance: VANCOMYCIN
     Indication: CAPNOCYTOPHAGA INFECTION
  3. VANCOMYCIN [Concomitant]
     Active Substance: VANCOMYCIN
     Indication: PNEUMONIA
  4. CLINDAMYCIN. [Concomitant]
     Active Substance: CLINDAMYCIN
     Indication: PYREXIA
  5. CEFTRIAXONE. [Suspect]
     Active Substance: CEFTRIAXONE
     Indication: CAPNOCYTOPHAGA INFECTION
  6. CLINDAMYCIN. [Concomitant]
     Active Substance: CLINDAMYCIN
     Indication: PNEUMONIA
  7. AZITHROMYCIN ANHYDROUS. [Concomitant]
     Active Substance: AZITHROMYCIN ANHYDROUS
     Indication: CAPNOCYTOPHAGA INFECTION
     Dosage: UNK
     Route: 065
  8. CLINDAMYCIN. [Concomitant]
     Active Substance: CLINDAMYCIN
     Indication: LUNG ABSCESS
  9. CEFTRIAXONE. [Suspect]
     Active Substance: CEFTRIAXONE
     Indication: LUNG ABSCESS
     Route: 065
  10. CLINDAMYCIN. [Concomitant]
     Active Substance: CLINDAMYCIN
     Indication: CAPNOCYTOPHAGA INFECTION
     Route: 065
  11. CLINDAMYCIN. [Concomitant]
     Active Substance: CLINDAMYCIN
     Indication: CAPNOCYTOPHAGA INFECTION
  12. VANCOMYCIN [Concomitant]
     Active Substance: VANCOMYCIN
     Indication: LUNG ABSCESS
     Dosage: UNK
     Route: 065

REACTIONS (1)
  - Drug resistance [Unknown]
